FAERS Safety Report 8965062 (Version 1)
Quarter: 2012Q4

REPORT INFORMATION
  Report Type: 
  Country: GB (occurrence: GB)
  Receive Date: 20121214
  Receipt Date: 20121214
  Transmission Date: 20130627
  Serious: Yes (Other)
  Sender: FDA-Public Use
  Company Number: GB-ASTRAZENECA-2012SE89286

PATIENT
  Sex: Female

DRUGS (4)
  1. PULMICORT [Suspect]
     Indication: ASTHMA
     Route: 055
  2. PULMICORT [Suspect]
     Indication: CHRONIC OBSTRUCTIVE PULMONARY DISEASE
     Route: 055
  3. PULMICORT [Suspect]
     Indication: ASTHMA
     Route: 055
  4. PULMICORT [Suspect]
     Indication: CHRONIC OBSTRUCTIVE PULMONARY DISEASE
     Route: 055

REACTIONS (2)
  - Chest discomfort [Recovered/Resolved]
  - Drug ineffective [None]
